FAERS Safety Report 4431408-6 (Version None)
Quarter: 2004Q3

REPORT INFORMATION
  Report Type: 
  Country: None (occurrence: None)
  Receive Date: 20040824
  Receipt Date: 20040729
  Transmission Date: 20050211
  Serious: Yes (Hospitalization, Other)
  Sender: FDA-Public Use
  Company Number: US-GLAXOSMITHKLINE-A0520317A

PATIENT
  Age: 51 Year
  Sex: Female
  Weight: 70 kg

DRUGS (10)
  1. LAMICTAL [Suspect]
     Indication: HEADACHE
     Route: 048
     Dates: start: 20040415
  2. PROZAC [Concomitant]
  3. DICLOFENAC [Concomitant]
  4. AMITRIPTYLINE HCL [Concomitant]
  5. NADOLOL [Concomitant]
  6. MIDRIN [Concomitant]
  7. FROVA [Concomitant]
  8. IMITREX [Concomitant]
  9. EXCEDRIN (MIGRAINE) [Concomitant]
  10. TOPAMAX [Concomitant]
     Dosage: 200MG PER DAY

REACTIONS (5)
  - DIARRHOEA [None]
  - GASTRIC DISORDER [None]
  - STOMACH DISCOMFORT [None]
  - SYNCOPE [None]
  - THROMBOCYTOPENIA [None]
